FAERS Safety Report 4426760-1 (Version None)
Quarter: 2004Q3

REPORT INFORMATION
  Report Type: 
  Country: None (occurrence: None)
  Receive Date: 20040816
  Receipt Date: 20040810
  Transmission Date: 20050211
  Serious: Yes (Life-Threatening, Hospitalization)
  Sender: FDA-Public Use
  Company Number: IL-ROCHE-377238

PATIENT
  Age: 43 Year
  Sex: Male

DRUGS (9)
  1. DACLIZUMAB [Suspect]
     Route: 042
     Dates: start: 20040721, end: 20040721
  2. MYCOPHENOLATE MOFETIL [Suspect]
     Route: 048
     Dates: start: 20040721
  3. SIROLIMUS [Suspect]
     Route: 048
     Dates: start: 20040724
  4. PREDNISONE [Suspect]
     Route: 048
     Dates: start: 20040725
  5. AMLODIPINE [Concomitant]
     Route: 048
     Dates: start: 20040726
  6. CARVEDILOL [Concomitant]
     Route: 048
     Dates: start: 20040723
  7. FUROSEMIDE [Concomitant]
     Route: 048
     Dates: start: 20040728
  8. HEPARIN [Concomitant]
     Route: 058
     Dates: start: 20040722
  9. INSULIN [Concomitant]
     Route: 058
     Dates: start: 20040729

REACTIONS (3)
  - KLEBSIELLA SEPSIS [None]
  - SEPSIS [None]
  - TRANSPLANT REJECTION [None]
